FAERS Safety Report 16821284 (Version 1)
Quarter: 2019Q3

REPORT INFORMATION
  Report Type: Spontaneous
  Country: BR (occurrence: BR)
  Receive Date: 20190918
  Receipt Date: 20190918
  Transmission Date: 20191005
  Serious: Yes (Other)
  Sender: FDA-Public Use
  Company Number: PHHY2019BR215479

PATIENT

DRUGS (2)
  1. BECLOMETHASONE [Suspect]
     Active Substance: BECLOMETHASONE
     Indication: LARYNGEAL GRANULOMA
     Dosage: 100 UG, Q12H (1 MONTH)
     Route: 065
  2. OMEPRAZOLE. [Suspect]
     Active Substance: OMEPRAZOLE
     Indication: REFLUX GASTRITIS
     Dosage: 40 MG, QD
     Route: 065

REACTIONS (1)
  - Disease recurrence [Unknown]
